FAERS Safety Report 5780535-X (Version None)
Quarter: 2008Q2

REPORT INFORMATION
  Report Type: 
  Country: None (occurrence: None)
  Receive Date: 20080620
  Receipt Date: 20080618
  Transmission Date: 20081010
  Serious: Yes (Other)
  Sender: FDA-Public Use
  Company Number: CA-WYE-G01719408

PATIENT
  Age: 30 Year
  Sex: Female

DRUGS (3)
  1. EFFEXOR XR [Suspect]
     Dosage: UNKNOWN
     Route: 048
     Dates: start: 20080301, end: 20080301
  2. EFFEXOR XR [Suspect]
     Dosage: UNKNOWN
     Route: 048
     Dates: start: 20080301, end: 20080401
  3. LORAZEPAM [Concomitant]
     Dosage: UNKNOWN
     Route: 048
     Dates: start: 20080401

REACTIONS (2)
  - RASH [None]
  - VASCULITIS [None]
